FAERS Safety Report 8611908 (Version 2)
Quarter: 2013Q4

REPORT INFORMATION
  Report Type: Report from Study
  Country: MX (occurrence: MX)
  Receive Date: 20120613
  Receipt Date: 20131015
  Transmission Date: 20140711
  Serious: Yes (Other)
  Sender: FDA-Public Use
  Company Number: PHHY2012MX041134

PATIENT
  Age: 79 Year
  Sex: Female

DRUGS (9)
  1. DIOVAN [Suspect]
     Indication: HYPERTENSION
     Dosage: 160 MG, DAILY
     Route: 048
     Dates: start: 200912
  2. DIOVAN [Suspect]
     Dosage: 160 MG ONE DAY AND 320 MG OTHER DAY
     Route: 048
     Dates: start: 200912
  3. DIOVAN [Suspect]
     Dosage: 320 MG, DAILY
     Route: 048
     Dates: start: 20100621
  4. GLIBENCLAMIDE [Concomitant]
     Indication: DIABETES MELLITUS
     Dosage: 15 MG, DAILY
  5. METFORMIN [Concomitant]
     Indication: DIABETES MELLITUS
     Dosage: 500 MG, DAILY
  6. KARET [Concomitant]
     Indication: NECK MASS
     Dosage: 1 TABLET A DAY
     Dates: start: 1980
  7. KARET [Concomitant]
     Indication: GOITRE
  8. LIPITOR [Concomitant]
     Indication: BLOOD CHOLESTEROL INCREASED
     Dosage: 40 MG, DAILY
  9. EVIPRESS [Concomitant]
     Dosage: 10 MG, DAILY

REACTIONS (11)
  - Diabetic neuropathy [Unknown]
  - Thrombosis [Not Recovered/Not Resolved]
  - Epistaxis [Not Recovered/Not Resolved]
  - Photopsia [Recovered/Resolved]
  - Varicose vein [Not Recovered/Not Resolved]
  - Discomfort [Not Recovered/Not Resolved]
  - Skin striae [Not Recovered/Not Resolved]
  - Pain in extremity [Not Recovered/Not Resolved]
  - Arthralgia [Unknown]
  - Hypertension [Recovered/Resolved]
  - Incorrect dose administered [Unknown]
